APPROVED DRUG PRODUCT: DIVALPROEX SODIUM
Active Ingredient: DIVALPROEX SODIUM
Strength: EQ 250MG VALPROIC ACID
Dosage Form/Route: TABLET, EXTENDED RELEASE;ORAL
Application: A215527 | Product #001 | TE Code: AB
Applicant: ANNORA PHARMA PRIVATE LTD
Approved: Sep 26, 2023 | RLD: No | RS: No | Type: RX